FAERS Safety Report 12140180 (Version 1)
Quarter: 2016Q1

REPORT INFORMATION
  Report Type: Spontaneous
  Country: US (occurrence: US)
  Receive Date: 20160303
  Receipt Date: 20160303
  Transmission Date: 20160526
  Serious: No
  Sender: FDA-Public Use
  Company Number: US-BAYER-2016-041916

PATIENT
  Age: 53 Year
  Sex: Male
  Weight: 95.24 kg

DRUGS (2)
  1. MIRALAX [Suspect]
     Active Substance: POLYETHYLENE GLYCOL 3350
     Indication: COLONOSCOPY
     Dosage: 14 DF, ONCE
     Route: 048
     Dates: start: 20160301, end: 20160301
  2. BISACODYL. [Concomitant]
     Active Substance: BISACODYL

REACTIONS (1)
  - Product use issue [None]
